FAERS Safety Report 15208355 (Version 1)
Quarter: 2018Q3

REPORT INFORMATION
  Report Type: Report from Study
  Country: AU (occurrence: AU)
  Receive Date: 20180727
  Receipt Date: 20180727
  Transmission Date: 20181010
  Serious: Yes (Hospitalization)
  Sender: FDA-Public Use
  Company Number: AU-ASTRAZENECA-2018SE94252

PATIENT

DRUGS (4)
  1. MIRTAZAPINE. [Interacting]
     Active Substance: MIRTAZAPINE
     Route: 048
  2. DULOXETINE. [Interacting]
     Active Substance: DULOXETINE
     Dosage: THE MEDIAN DOSE WAS 840 MG (RANGE 180?2820 MG)
  3. DIAZEPAM. [Interacting]
     Active Substance: DIAZEPAM
     Route: 048
  4. QUETIAPINE FUMARATE. [Suspect]
     Active Substance: QUETIAPINE FUMARATE
     Route: 048

REACTIONS (3)
  - Drug interaction [Unknown]
  - Tachycardia [Unknown]
  - Electrocardiogram QT interval abnormal [Unknown]
